FAERS Safety Report 6838806-1 (Version None)
Quarter: 2010Q3

REPORT INFORMATION
  Report Type: 
  Country: None (occurrence: None)
  Receive Date: 20100713
  Receipt Date: 20070705
  Transmission Date: 20110219
  Serious: No
  Sender: FDA-Public Use
  Company Number: US-PFIZER INC-2007037589

PATIENT
  Sex: Female
  Weight: 79.1 kg

DRUGS (4)
  1. CHANTIX [Suspect]
     Indication: SMOKING CESSATION THERAPY
     Dates: start: 20070317
  2. HYPERICUM PERFORATUM [Suspect]
     Dates: end: 20070523
  3. LEXAPRO [Concomitant]
     Indication: DEPRESSION
  4. LEVONORGESTREL [Concomitant]
     Dates: start: 20070301

REACTIONS (3)
  - DYSAESTHESIA [None]
  - HYPERAESTHESIA [None]
  - PARAESTHESIA [None]
